FAERS Safety Report 6976920-0 (Version None)
Quarter: 2010Q3

REPORT INFORMATION
  Report Type: 
  Country: None (occurrence: None)
  Receive Date: 20100910
  Receipt Date: 20100831
  Transmission Date: 20110219
  Serious: Yes (Hospitalization)
  Sender: FDA-Public Use
  Company Number: DE-JNJFOC-20080500229

PATIENT
  Sex: Male
  Weight: 73.5 kg

DRUGS (6)
  1. REMICADE [Suspect]
     Indication: CROHN'S DISEASE
     Route: 042
  2. MESALAMINE [Concomitant]
  3. CLAVERSAL [Concomitant]
  4. VITAMIN D3 + CALCIUM [Concomitant]
     Indication: OSTEOPOROSIS
  5. PANTOPRAZOLE SODIUM [Concomitant]
     Indication: REFLUX OESOPHAGITIS
  6. CORTISON [Concomitant]

REACTIONS (4)
  - ANORECTAL DISORDER [None]
  - COLECTOMY [None]
  - SIGMOIDECTOMY [None]
  - SMALL INTESTINAL RESECTION [None]
